APPROVED DRUG PRODUCT: PROMETHACON
Active Ingredient: PROMETHAZINE HYDROCHLORIDE
Strength: 50MG
Dosage Form/Route: SUPPOSITORY;RECTAL
Application: A084902 | Product #001
Applicant: POLYMEDICA INDUSTRIES INC
Approved: Approved Prior to Jan 1, 1982 | RLD: No | RS: No | Type: DISCN